FAERS Safety Report 9387287 (Version 1)
Quarter: 2013Q3

REPORT INFORMATION
  Report Type: Spontaneous
  Country: US (occurrence: None)
  Receive Date: 20130703
  Receipt Date: 20130703
  Transmission Date: 20140515
  Serious: Yes (Hospitalization)
  Sender: FDA-Public Use
  Company Number: None

PATIENT
  Age: 44 Year
  Sex: Female
  Weight: 81.65 kg

DRUGS (1)
  1. DIVALPROEX [Suspect]
     Indication: STATUS EPILEPTICUS
     Dosage: DIVALPROEX 500MG 2-QAM 3Q PM ORAL SINCE 15 Y/O

REACTIONS (1)
  - Drug ineffective [None]
